FAERS Safety Report 14620217 (Version 1)
Quarter: 2018Q1

REPORT INFORMATION
  Report Type: Report from Study
  Country: BR (occurrence: BR)
  Receive Date: 20180309
  Receipt Date: 20180309
  Transmission Date: 20180509
  Serious: Yes (Death)
  Sender: FDA-Public Use
  Company Number: PHHY2018BR039543

PATIENT
  Age: 92 Year
  Sex: Female
  Weight: 84 kg

DRUGS (3)
  1. REDOXON [Concomitant]
     Active Substance: ASCORBIC ACID
     Indication: BONE DISORDER
     Route: 065
  2. ACLASTA [Suspect]
     Active Substance: ZOLEDRONIC ACID
     Dosage: 1 DF (5MG/100ML), Q12MO
     Route: 042
     Dates: start: 2013, end: 2013
  3. ACLASTA [Suspect]
     Active Substance: ZOLEDRONIC ACID
     Indication: OSTEOPOROSIS
     Dosage: 1 DF (5MG/100ML), Q12MO
     Route: 042
     Dates: start: 2008

REACTIONS (4)
  - Death [Fatal]
  - Neoplasm malignant [Fatal]
  - Weight increased [Unknown]
  - Mobility decreased [Recovering/Resolving]

NARRATIVE: CASE EVENT DATE: 20160524
